FAERS Safety Report 8098306-0 (Version None)
Quarter: 2012Q1

REPORT INFORMATION
  Report Type: 
  Country: None (occurrence: None)
  Receive Date: 20120129
  Receipt Date: 20110930
  Transmission Date: 20120608
  Serious: No
  Sender: FDA-Public Use
  Company Number: US-ABBOTT-11P-163-0860270-00

PATIENT
  Sex: Female

DRUGS (2)
  1. HUMIRA [Suspect]
     Indication: PSORIASIS
     Dosage: INITIAL DOSE
     Route: 058
     Dates: start: 20110801
  2. HUMIRA [Suspect]
     Dosage: DAY 8 AND DAY 22
     Dates: end: 20110901

REACTIONS (2)
  - PSORIASIS [None]
  - DRUG INEFFECTIVE [None]
